FAERS Safety Report 24814768 (Version 1)
Quarter: 2025Q1

REPORT INFORMATION
  Report Type: Spontaneous
  Country: HK (occurrence: HK)
  Receive Date: 20250107
  Receipt Date: 20250107
  Transmission Date: 20250409
  Serious: Yes (Life-Threatening, Hospitalization, Other)
  Sender: OXFORD PHARMACEUTICALS, LLC
  Company Number: HK-Oxford Pharmaceuticals, LLC-2168570

PATIENT
  Age: 16 Year
  Sex: Female

DRUGS (6)
  1. AMLODIPINE BESYLATE [Suspect]
     Active Substance: AMLODIPINE BESYLATE
     Indication: Suicide attempt
  2. METFORMIN [Suspect]
     Active Substance: METFORMIN HYDROCHLORIDE
  3. GLUCAGON [Concomitant]
     Active Substance: GLUCAGON
  4. INSULIN NOS [Concomitant]
     Active Substance: INSULIN NOS
  5. FAT EMULSION NOS [Concomitant]
     Active Substance: EGG PHOSPHOLIPIDS\SAFFLOWER OIL\SOYBEAN OIL
  6. CALCIUM [Concomitant]
     Active Substance: CALCIUM

REACTIONS (3)
  - Acute kidney injury [Unknown]
  - Overdose [Unknown]
  - Lactic acidosis [Recovering/Resolving]
